FAERS Safety Report 11999070 (Version 2)
Quarter: 2016Q1

REPORT INFORMATION
  Report Type: Report from Study
  Country: CA (occurrence: CA)
  Receive Date: 20160204
  Receipt Date: 20160204
  Transmission Date: 20160526
  Serious: Yes (Hospitalization)
  Sender: FDA-Public Use
  Company Number: CA-ROCHE-1676673

PATIENT
  Age: 66 Year
  Sex: Male
  Weight: 66.7 kg

DRUGS (28)
  1. IRINOTECAN [Suspect]
     Active Substance: IRINOTECAN
     Indication: METASTATIC GASTRIC CANCER
     Route: 042
     Dates: start: 20151202, end: 20160104
  2. AMLODIPINE [Concomitant]
     Active Substance: AMLODIPINE BESYLATE
     Route: 065
     Dates: start: 2012
  3. METFORMIN [Concomitant]
     Active Substance: METFORMIN HYDROCHLORIDE
     Route: 065
     Dates: start: 2008
  4. LACTULOSE. [Concomitant]
     Active Substance: LACTULOSE
     Route: 065
     Dates: start: 20151125
  5. DALTEPARIN [Concomitant]
     Active Substance: DALTEPARIN
     Dosage: DOSE: 12500 U.
     Route: 065
     Dates: start: 20151216
  6. MORPHINE [Concomitant]
     Active Substance: MORPHINE
     Dosage: 2.5 - 5 MG AS REQUIRED.
     Route: 065
     Dates: start: 201508
  7. METFORMIN [Concomitant]
     Active Substance: METFORMIN HYDROCHLORIDE
     Route: 065
     Dates: start: 2008
  8. ASPIRIN. [Concomitant]
     Active Substance: ASPIRIN
     Route: 065
     Dates: start: 1995
  9. OMEPRAZOLE. [Concomitant]
     Active Substance: OMEPRAZOLE
     Route: 065
     Dates: start: 20151118
  10. ATORVASTATIN [Concomitant]
     Active Substance: ATORVASTATIN
     Route: 065
     Dates: start: 20151118
  11. OXALIPLATIN. [Suspect]
     Active Substance: OXALIPLATIN
     Indication: METASTATIC GASTRIC CANCER
     Route: 042
     Dates: start: 20151202, end: 20160104
  12. HYDROCHLOROTHIAZIDE. [Concomitant]
     Active Substance: HYDROCHLOROTHIAZIDE
     Route: 065
     Dates: start: 20151118
  13. AMLODIPINE [Concomitant]
     Active Substance: AMLODIPINE BESYLATE
     Route: 065
     Dates: start: 2012
  14. NOVOLIN [Concomitant]
     Active Substance: INSULIN HUMAN
     Dosage: 5- NOVOLIN ?100 MCL/ML (TOTAL DAILY DOSE)
     Route: 065
     Dates: start: 2008
  15. FOLIC ACID. [Concomitant]
     Active Substance: FOLIC ACID
     Route: 065
     Dates: start: 1995
  16. CAPECITABINE. [Suspect]
     Active Substance: CAPECITABINE
     Indication: METASTATIC GASTRIC CANCER
     Route: 048
  17. VALSARTAN. [Concomitant]
     Active Substance: VALSARTAN
     Route: 065
     Dates: start: 2012
  18. SENOKOT [Concomitant]
     Active Substance: SENNOSIDES
     Dosage: 2 TABLET AS REQUIRED
     Route: 065
     Dates: start: 20151125
  19. PANTOPRAZOLE [Concomitant]
     Active Substance: PANTOPRAZOLE SODIUM
     Route: 065
     Dates: start: 20151211
  20. CAPECITABINE. [Suspect]
     Active Substance: CAPECITABINE
     Route: 048
  21. VITAMIN B12 [Concomitant]
     Active Substance: CYANOCOBALAMIN
     Route: 065
     Dates: start: 1995
  22. COUMADIN [Concomitant]
     Active Substance: WARFARIN SODIUM
     Indication: PERIPHERAL VASCULAR DISORDER
     Dosage: TAKEN FOR ABOUT 20 YEARS
     Route: 065
     Dates: end: 20151204
  23. CAPECITABINE. [Suspect]
     Active Substance: CAPECITABINE
     Route: 048
  24. NPH INSULIN [Concomitant]
     Active Substance: INSULIN BEEF
     Dosage: DOSE: 22 U.
     Route: 065
     Dates: start: 20151209
  25. TRAMADOL. [Concomitant]
     Active Substance: TRAMADOL
     Route: 065
     Dates: start: 20151210
  26. LEVOFLOXACIN. [Concomitant]
     Active Substance: LEVOFLOXACIN
     Route: 065
     Dates: start: 20151215
  27. ATENOLOL. [Concomitant]
     Active Substance: ATENOLOL
     Route: 065
     Dates: start: 2012
  28. SPIRONOLACTONE. [Concomitant]
     Active Substance: SPIRONOLACTONE
     Route: 065
     Dates: start: 2012

REACTIONS (3)
  - Myocardial infarction [Recovered/Resolved]
  - Thrombosis [Recovered/Resolved with Sequelae]
  - Peripheral ischaemia [Recovered/Resolved with Sequelae]

NARRATIVE: CASE EVENT DATE: 20151208
